FAERS Safety Report 8202196-2 (Version None)
Quarter: 2012Q1

REPORT INFORMATION
  Report Type: 
  Country: None (occurrence: None)
  Receive Date: 20120312
  Receipt Date: 20100126
  Transmission Date: 20120608
  Serious: Yes (Death, Other)
  Sender: FDA-Public Use
  Company Number: US-BAYER-201032099NA

PATIENT
  Age: 63 Year
  Sex: Male
  Weight: 88.889 kg

DRUGS (11)
  1. INSULIN [Concomitant]
     Dosage: UNK
     Route: 042
     Dates: start: 20040607
  2. PROTAMINE SULFATE [Concomitant]
     Dosage: UNK
     Route: 042
     Dates: start: 20040607
  3. TRASYLOL [Suspect]
     Indication: CORONARY ARTERY BYPASS
     Dosage: 200 ML PUMP PRIME; LOADING DOSE FROM 1600-1750, INFUSION RATE OR TOTAL
     Dates: start: 20040607, end: 20040607
  4. GLYBURIDE [Concomitant]
     Dosage: UNK
     Route: 048
     Dates: start: 20040604, end: 20080101
  5. HEPARIN [Concomitant]
     Dosage: 20,000 UNITS
     Route: 042
     Dates: start: 20040607
  6. LOVASTATIN [Concomitant]
     Dosage: UNK
     Route: 048
     Dates: start: 20040604, end: 20080101
  7. NITROGLYCERIN [Concomitant]
     Dosage: UNK
     Route: 042
     Dates: start: 20040607
  8. GLIPIZIDE [Concomitant]
     Dosage: UNK
     Route: 048
     Dates: start: 20040401, end: 20080101
  9. ASPIRIN [Concomitant]
     Dosage: UNK
     Dates: start: 20040604, end: 20080101
  10. METFORMIN HCL [Concomitant]
     Route: 048
  11. ATENOLOL [Concomitant]
     Dosage: UNK
     Route: 048
     Dates: start: 19980101, end: 20080101

REACTIONS (11)
  - RENAL IMPAIRMENT [None]
  - MULTI-ORGAN FAILURE [None]
  - FEAR [None]
  - RENAL INJURY [None]
  - EMOTIONAL DISTRESS [None]
  - UNEVALUABLE EVENT [None]
  - RENAL FAILURE [None]
  - ANXIETY [None]
  - PAIN [None]
  - STRESS [None]
  - DEATH [None]
